FAERS Safety Report 8504505-3 (Version None)
Quarter: 2012Q3

REPORT INFORMATION
  Report Type: 
  Country: None (occurrence: None)
  Receive Date: 20120711
  Receipt Date: 20120704
  Transmission Date: 20120928
  Serious: Yes (Hospitalization)
  Sender: FDA-Public Use
  Company Number: RS-ROCHE-1077535

PATIENT
  Sex: Male

DRUGS (3)
  1. PREDNISONE [Suspect]
     Indication: RENAL TRANSPLANT
     Route: 048
  2. CELLCEPT [Suspect]
     Indication: RENAL TRANSPLANT
     Dosage: FREQUENCY: 1000 + 750 MG (DOSE: 1750 MG)
     Route: 048
     Dates: start: 20020924
  3. CYCLOSPORINE [Suspect]
     Indication: RENAL TRANSPLANT
     Route: 048

REACTIONS (1)
  - PROCEDURAL COMPLICATION [None]
